FAERS Safety Report 6827838-5 (Version None)
Quarter: 2010Q3

REPORT INFORMATION
  Report Type: 
  Country: None (occurrence: None)
  Receive Date: 20100709
  Receipt Date: 20100630
  Transmission Date: 20110219
  Serious: Yes (Hospitalization, Other)
  Sender: FDA-Public Use
  Company Number: US-AMGEN-QUU414783

PATIENT
  Sex: Female

DRUGS (6)
  1. ENBREL [Suspect]
     Indication: RHEUMATOID ARTHRITIS
     Route: 058
     Dates: start: 20100422, end: 20100519
  2. PREDNISONE [Concomitant]
     Dates: start: 20100401
  3. PRILOSEC [Concomitant]
  4. UNSPECIFIED MEDICATION [Concomitant]
  5. CORTICOSTEROID NOS [Concomitant]
  6. DEPO-MEDROL [Concomitant]

REACTIONS (4)
  - ANGIOEDEMA [None]
  - DYSPHONIA [None]
  - LARYNGEAL OEDEMA [None]
  - OROPHARYNGEAL PAIN [None]
